FAERS Safety Report 9486764 (Version 1)
Quarter: 2013Q3

REPORT INFORMATION
  Report Type: Spontaneous
  Country: TR (occurrence: None)
  Receive Date: 20130823
  Receipt Date: 20130823
  Transmission Date: 20140515
  Serious: Yes (Death)
  Sender: FDA-Public Use
  Company Number: 2013P1018641

PATIENT
  Age: 82 Year
  Sex: Male

DRUGS (5)
  1. ZOLEDRONIC ACID INJECTION [Suspect]
     Dosage: 4MG;Q4W;IV
     Route: 042
  2. BICALUTAMIDE [Concomitant]
  3. LUTEINZING HORMONE [Concomitant]
  4. RELEASING HORMONE [Concomitant]
  5. ANALOG [Concomitant]

REACTIONS (2)
  - Haemodialysis [None]
  - Osteonecrosis of jaw [None]
